FAERS Safety Report 9951102 (Version 1)
Quarter: 2014Q1

REPORT INFORMATION
  Report Type: Report from Study
  Country: US (occurrence: US)
  Receive Date: 20140304
  Receipt Date: 20140304
  Transmission Date: 20141002
  Serious: No
  Sender: FDA-Public Use
  Company Number: US-ABBVIE-13P-163-1068235-00

PATIENT
  Age: 56 Year
  Sex: Female

DRUGS (7)
  1. HUMIRA [Suspect]
  2. ADVAIR DISKUS [Concomitant]
     Indication: PRODUCT USED FOR UNKNOWN INDICATION
     Dosage: DAILY
  3. PROVENTIL [Concomitant]
     Indication: PRODUCT USED FOR UNKNOWN INDICATION
     Dosage: INHALER, EVERY 4 TO 6 HOURS, AS NEEDED
  4. GEMFIBROZIL [Concomitant]
     Indication: BLOOD CHOLESTEROL
  5. PRAVASTATIN SODIUM [Concomitant]
     Indication: BLOOD CHOLESTEROL
  6. CLOBEX SPRAY [Concomitant]
     Indication: PRODUCT USED FOR UNKNOWN INDICATION
     Dosage: DAILY
     Route: 061
  7. CLOBETASOL OINTMENT [Concomitant]
     Indication: PRODUCT USED FOR UNKNOWN INDICATION

REACTIONS (3)
  - Cough [Recovering/Resolving]
  - Nasopharyngitis [Recovering/Resolving]
  - Back pain [Recovered/Resolved]
